FAERS Safety Report 7707216-7 (Version None)
Quarter: 2011Q3

REPORT INFORMATION
  Report Type: 
  Country: None (occurrence: None)
  Receive Date: 20110824
  Receipt Date: 20110810
  Transmission Date: 20111222
  Serious: Yes (Hospitalization, Other)
  Sender: FDA-Public Use
  Company Number: PHHY2010ZA82484

PATIENT
  Sex: Female

DRUGS (4)
  1. LEVOTHYROXINE SODIUM [Concomitant]
     Dosage: 0.5 MG, UNK
  2. TOPZOLE [Concomitant]
  3. EXFORGE [Suspect]
  4. DIOVAN [Suspect]
     Dosage: 160 MG, UNK
     Route: 048
     Dates: end: 20100401

REACTIONS (7)
  - GALLBLADDER DISORDER [None]
  - ULCER [None]
  - MALAISE [None]
  - NAUSEA [None]
  - CHEST PAIN [None]
  - HYPERTENSION [None]
  - WEIGHT DECREASED [None]
